FAERS Safety Report 6237752-4 (Version None)
Quarter: 2009Q2

REPORT INFORMATION
  Report Type: 
  Country: None (occurrence: None)
  Receive Date: 20090618
  Receipt Date: 20090601
  Transmission Date: 20091009
  Serious: Yes (Hospitalization)
  Sender: FDA-Public Use
  Company Number: 2009AP002213

PATIENT
  Age: 56 Year
  Sex: Female

DRUGS (3)
  1. AMLODIPINE BESYLATE [Suspect]
  2. NISOLDIPINE [Suspect]
  3. ISRADIPINE [Suspect]

REACTIONS (4)
  - FAECES DISCOLOURED [None]
  - HAEMATOCHEZIA [None]
  - NAUSEA [None]
  - SMALL BOWEL ANGIOEDEMA [None]
